FAERS Safety Report 6570180-0 (Version None)
Quarter: 2010Q1

REPORT INFORMATION
  Report Type: 
  Country: None (occurrence: None)
  Receive Date: 20100202
  Receipt Date: 20100202
  Transmission Date: 20100710
  Serious: No
  Sender: FDA-Public Use
  Company Number: None

PATIENT
  Age: 49 Year
  Sex: Male
  Weight: 88.4514 kg

DRUGS (6)
  1. HYZAAR [Suspect]
     Indication: DIZZINESS
     Dosage: PO
     Route: 048
     Dates: start: 20080415, end: 20080420
  2. HYZAAR [Suspect]
     Indication: MYALGIA
     Dosage: PO
     Route: 048
     Dates: start: 20080415, end: 20080420
  3. HYZAAR [Suspect]
     Indication: TINNITUS
     Dosage: PO
     Route: 048
     Dates: start: 20080415, end: 20080420
  4. COZAAR [Suspect]
     Indication: DIZZINESS
     Dosage: PO
     Route: 048
     Dates: start: 20080421, end: 20080424
  5. COZAAR [Suspect]
     Indication: MYALGIA
     Dosage: PO
     Route: 048
     Dates: start: 20080421, end: 20080424
  6. COZAAR [Suspect]
     Indication: TINNITUS
     Dosage: PO
     Route: 048
     Dates: start: 20080421, end: 20080424

REACTIONS (4)
  - BURNING SENSATION [None]
  - DRUG INEFFECTIVE [None]
  - MYALGIA [None]
  - POLLAKIURIA [None]
